FAERS Safety Report 8124647-4 (Version None)
Quarter: 2012Q1

REPORT INFORMATION
  Report Type: 
  Country: None (occurrence: None)
  Receive Date: 20120209
  Receipt Date: 20120209
  Transmission Date: 20120608
  Serious: Yes (Other)
  Sender: FDA-Public Use
  Company Number: None

PATIENT
  Sex: Female

DRUGS (1)
  1. LITHIUM CARBONATE [Suspect]
     Indication: MENTAL DISORDER
     Dosage: 600MG
     Route: 048
     Dates: start: 20091210, end: 20120112

REACTIONS (1)
  - TOXICITY TO VARIOUS AGENTS [None]
